FAERS Safety Report 22541895 (Version 1)
Quarter: 2023Q2

REPORT INFORMATION
  Report Type: Spontaneous
  Country: CA (occurrence: CA)
  Receive Date: 20230609
  Receipt Date: 20230609
  Transmission Date: 20230721
  Serious: Yes (Life-Threatening)
  Sender: FDA-Public Use
  Company Number: CA-HLS-202301441

PATIENT
  Age: 60 Year
  Sex: Female

DRUGS (4)
  1. CLOZARIL [Suspect]
     Active Substance: CLOZAPINE
     Indication: Schizophrenia
     Dosage: 1 EVERY 1 DAYS?AMOUNT: 200 MILLIGRAM?TABLETS DOSAGE FORM?THERAPY DURATION: 11 DAYS
     Route: 048
  2. HALOPERIDOL [Concomitant]
     Active Substance: HALOPERIDOL
     Dosage: NOT SPECIFIED DOSAGE FORM
     Route: 065
  3. QUETIAPINE [Concomitant]
     Active Substance: QUETIAPINE
     Dosage: TABLETS DOSAGE FORM
     Route: 065
  4. SERTRALINE [Concomitant]
     Active Substance: SERTRALINE HYDROCHLORIDE
     Dosage: CAPSULES DOSAGE FORM
     Route: 065

REACTIONS (9)
  - Blood lactic acid increased [Recovering/Resolving]
  - Dyspnoea [Recovering/Resolving]
  - Fall [Recovering/Resolving]
  - Gait disturbance [Recovering/Resolving]
  - Hallucination [Recovering/Resolving]
  - Pulmonary embolism [Recovering/Resolving]
  - Sinus tachycardia [Recovering/Resolving]
  - Troponin increased [Recovering/Resolving]
  - White blood cell count increased [Recovering/Resolving]
